FAERS Safety Report 16237834 (Version 1)
Quarter: 2019Q2

REPORT INFORMATION
  Report Type: Spontaneous
  Country: AU (occurrence: AU)
  Receive Date: 20190425
  Receipt Date: 20190425
  Transmission Date: 20190711
  Serious: Yes (Other)
  Sender: FDA-Public Use
  Company Number: AU-TASMAN PHARMA, INC.-2019TSM00031

PATIENT
  Sex: Male
  Weight: 134 kg

DRUGS (61)
  1. CLOZAPINE. [Suspect]
     Active Substance: CLOZAPINE
     Dosage: 600 MG, 1X/DAY
     Dates: start: 20161024, end: 20170924
  2. CLOZAPINE. [Suspect]
     Active Substance: CLOZAPINE
     Dosage: 150 MG, 1X/DAY
     Dates: start: 20031103, end: 20031116
  3. CLOZAPINE. [Suspect]
     Active Substance: CLOZAPINE
     Dosage: 600 MG, 1X/DAY
     Dates: start: 20150115, end: 20150118
  4. CLOZAPINE. [Suspect]
     Active Substance: CLOZAPINE
     Dosage: 550 MG, 1X/DAY
     Dates: start: 20080623, end: 20080817
  5. CLOZAPINE. [Suspect]
     Active Substance: CLOZAPINE
     Dosage: 50 MG, 1X/DAY
     Dates: start: 20131007, end: 20131013
  6. CLOZAPINE. [Suspect]
     Active Substance: CLOZAPINE
     Dosage: 125 MG, 1X/DAY
     Dates: start: 20131014, end: 20131020
  7. CLOZAPINE. [Suspect]
     Active Substance: CLOZAPINE
     Dosage: 650 MG, 1X/DAY
     Dates: start: 20140630, end: 20140727
  8. CLOZAPINE. [Suspect]
     Active Substance: CLOZAPINE
     Dosage: 350 MG, 1X/DAY
     Dates: start: 20040503, end: 20040627
  9. CLOZAPINE. [Suspect]
     Active Substance: CLOZAPINE
     Dosage: 550 MG, 1X/DAY
     Dates: start: 20050308, end: 20050501
  10. CLOZAPINE. [Suspect]
     Active Substance: CLOZAPINE
     Dosage: 500 MG, 1X/DAY
     Dates: start: 20050601, end: 20050626
  11. CLOZAPINE. [Suspect]
     Active Substance: CLOZAPINE
     Dosage: 500 MG, 1X/DAY
     Dates: start: 20171218, end: 20180114
  12. CLOZAPINE. [Suspect]
     Active Substance: CLOZAPINE
     Dosage: 300 MG, 1X/DAY
     Dates: start: 20180507, end: 20180729
  13. CLOZAPINE. [Suspect]
     Active Substance: CLOZAPINE
     Dosage: 450 MG, 1X/DAY
     Dates: start: 20040726, end: 20040823
  14. CLOZAPINE. [Suspect]
     Active Substance: CLOZAPINE
     Dosage: 500 MG, 1X/DAY
     Dates: start: 20040824, end: 20050307
  15. CLOZAPINE. [Suspect]
     Active Substance: CLOZAPINE
     Dosage: 650 MG, 1X/DAY
     Dates: start: 20080107, end: 20080525
  16. CLOZAPINE. [Suspect]
     Active Substance: CLOZAPINE
     Dosage: 450 MG, 1X/DAY
     Dates: start: 20190408, end: 20190408
  17. CLOZAPINE. [Suspect]
     Active Substance: CLOZAPINE
     Dosage: 600 MG, 1X/DAY
     Dates: start: 20080526, end: 20080622
  18. CLOZAPINE. [Suspect]
     Active Substance: CLOZAPINE
     Dosage: 550 MG, 1X/DAY
     Dates: start: 20081208, end: 20090315
  19. CLOZAPINE. [Suspect]
     Active Substance: CLOZAPINE
     Dosage: 700 MG, 1X/DAY
     Dates: start: 20160704, end: 20160925
  20. CLOZAPINE. [Suspect]
     Active Substance: CLOZAPINE
     Dosage: 350 MG, 1X/DAY
     Dates: start: 20180212, end: 20180506
  21. CLOZAPINE. [Suspect]
     Active Substance: CLOZAPINE
     Dosage: 350 MG, 1X/DAY
     Dates: start: 20180730, end: 20180826
  22. CLOZAPINE. [Suspect]
     Active Substance: CLOZAPINE
     Dosage: 400 MG, 1X/DAY
     Dates: start: 20180827, end: 20181216
  23. CLOZAPINE. [Suspect]
     Active Substance: CLOZAPINE
     Dosage: 450 MG
     Dates: start: 20190409
  24. CLOZAPINE. [Suspect]
     Active Substance: CLOZAPINE
     Dosage: 300 MG, 1X/DAY
     Dates: start: 20031229, end: 20040502
  25. CLOZAPINE. [Suspect]
     Active Substance: CLOZAPINE
     Dosage: 600 MG, 1X/DAY
     Dates: start: 20051116, end: 20080106
  26. CLOZAPINE. [Suspect]
     Active Substance: CLOZAPINE
     Dosage: 650 MG, 1X/DAY
     Dates: start: 20160609, end: 20160703
  27. CLOZAPINE. [Suspect]
     Active Substance: CLOZAPINE
     Dosage: 550 MG, 1X/DAY
     Dates: start: 20090407, end: 20090615
  28. CLOZAPINE. [Suspect]
     Active Substance: CLOZAPINE
     Dosage: 400 MG, 1X/DAY
     Dates: start: 20131104, end: 20131124
  29. CLOZAPINE. [Suspect]
     Active Substance: CLOZAPINE
     Dosage: 50 MG, 1X/DAY
     Dates: start: 20150119, end: 20150125
  30. CLOZAPINE. [Suspect]
     Active Substance: CLOZAPINE
     Dosage: 400 MG, 1X/DAY
     Dates: start: 20180115, end: 20180211
  31. CLOZAPINE. [Suspect]
     Active Substance: CLOZAPINE
     Dosage: 200 MG, 1X/DAY
     Dates: start: 20031117, end: 20031221
  32. CLOZAPINE. [Suspect]
     Active Substance: CLOZAPINE
     Dosage: 400 MG, 1X/DAY
     Dates: start: 20040628, end: 20040725
  33. CLOZAPINE. [Suspect]
     Active Substance: CLOZAPINE
     Dosage: 500 MG, 1X/DAY
     Dates: start: 20150223, end: 20150224
  34. CLOZAPINE. [Suspect]
     Active Substance: CLOZAPINE
     Dosage: 650 MG, 1X/DAY
     Dates: start: 20090316, end: 20090406
  35. CLOZAPINE. [Suspect]
     Active Substance: CLOZAPINE
     Dosage: 525 UMG, 1X/DAY
     Dates: start: 20140407, end: 20140504
  36. CLOZAPINE. [Suspect]
     Active Substance: CLOZAPINE
     Dosage: 600 MG, 1X/DAY
     Dates: start: 20140505, end: 20140629
  37. CLOZAPINE. [Suspect]
     Active Substance: CLOZAPINE
     Dosage: 450 MG, 1X/DAY
     Dates: start: 20150126, end: 20150129
  38. CLOZAPINE. [Suspect]
     Active Substance: CLOZAPINE
     Dosage: 500 MG, 1X/DAY
     Dates: start: 20150225, end: 20160228
  39. CLOZAPINE. [Suspect]
     Active Substance: CLOZAPINE
     Dosage: 625 MG, 1X/DAY
     Dates: start: 20170925, end: 20171119
  40. CLOZAPINE. [Suspect]
     Active Substance: CLOZAPINE
     Dosage: 450 MG, 1X/DAY
     Dates: start: 20181217, end: 20190113
  41. CLOZAPINE. [Suspect]
     Active Substance: CLOZAPINE
     Dosage: 400 MG, 1X/DAY
     Dates: start: 20190114, end: 20190210
  42. CLOZAPINE. [Suspect]
     Active Substance: CLOZAPINE
     Dosage: 500 MG, 1X/DAY
     Dates: start: 20051017, end: 20051115
  43. CLOZAPINE. [Suspect]
     Active Substance: CLOZAPINE
     Dosage: 600 MG, 1X/DAY
     Dates: start: 20080818, end: 20081207
  44. CLOZAPINE. [Suspect]
     Active Substance: CLOZAPINE
     Dosage: 325 MG, 1X/DAY
     Dates: start: 20131028, end: 20131103
  45. CLOZAPINE. [Suspect]
     Active Substance: CLOZAPINE
     Dosage: 500 MG, 1X/DAY
     Dates: start: 20131216, end: 20140105
  46. CLOZAPINE. [Suspect]
     Active Substance: CLOZAPINE
     Dosage: 600 MG, 1X/DAY
     Dates: start: 20140728, end: 20150114
  47. CLOZAPINE. [Suspect]
     Active Substance: CLOZAPINE
     Dosage: 650 MG, 1X/DAY
     Dates: start: 20160926, end: 20161023
  48. CLOZAPINE. [Suspect]
     Active Substance: CLOZAPINE
     Dosage: 650 MG, 1X/DAY
     Dates: start: 20171120, end: 20171217
  49. CLOZAPINE. [Suspect]
     Active Substance: CLOZAPINE
     Dosage: 600 MG, 1X/DAY
     Dates: start: 20050502, end: 20050531
  50. CLOZAPINE. [Suspect]
     Active Substance: CLOZAPINE
     Dosage: 600 MG, 1X/DAY
     Dates: start: 20050627, end: 20051016
  51. CLOZAPINE. [Suspect]
     Active Substance: CLOZAPINE
     Dosage: 225 MG, 1X/DAY
     Dates: start: 20131021, end: 20131027
  52. CLOZAPINE. [Suspect]
     Active Substance: CLOZAPINE
     Dosage: 450 MG, 1X/DAY
     Dates: start: 20131202, end: 20131215
  53. CLOZAPINE. [Suspect]
     Active Substance: CLOZAPINE
     Dosage: 500 MG, 1X/DAY
     Dates: start: 20140113, end: 20140406
  54. CLOZAPINE. [Suspect]
     Active Substance: CLOZAPINE
     Dosage: 500 MG, 1X/DAY
     Dates: start: 20150130, end: 20150222
  55. CLOZAPINE. [Suspect]
     Active Substance: CLOZAPINE
     Dosage: 650 MG, 1X/DAY
     Dates: start: 20160516, end: 20160608
  56. LITHIUM. [Concomitant]
     Active Substance: LITHIUM
  57. CLOZAPINE. [Suspect]
     Active Substance: CLOZAPINE
     Dosage: 450 MG, 1X/DAY
     Dates: start: 20190211, end: 20190407
  58. CLOZAPINE. [Suspect]
     Active Substance: CLOZAPINE
     Dosage: 250 MG, 1X/D
     Dates: start: 20031222, end: 20031228
  59. CLOZAPINE. [Suspect]
     Active Substance: CLOZAPINE
     Dosage: 550 MG, 1X/DAY
     Dates: start: 20090616
  60. CLOZAPINE. [Suspect]
     Active Substance: CLOZAPINE
     Dosage: 500 MG, 1X/DAY
     Dates: start: 20140106, end: 20140112
  61. CLOZAPINE. [Suspect]
     Active Substance: CLOZAPINE
     Dosage: 600 MG, 1X/DAY
     Dates: start: 20160229, end: 20160515

REACTIONS (5)
  - Hepatitis C [Unknown]
  - Neutropenia [Recovered/Resolved]
  - Leukopenia [Recovered/Resolved]
  - Dizziness [Unknown]
  - Abscess limb [Recovering/Resolving]
